FAERS Safety Report 23004004 (Version 2)
Quarter: 2024Q1

REPORT INFORMATION
  Report Type: Report from Study
  Country: NL (occurrence: NL)
  Receive Date: 20230928
  Receipt Date: 20240205
  Transmission Date: 20240409
  Serious: Yes (Hospitalization)
  Sender: FDA-Public Use
  Company Number: NL-ABBVIE-5426137

PATIENT
  Sex: Male

DRUGS (9)
  1. CARBIDOPA\LEVODOPA [Suspect]
     Active Substance: CARBIDOPA\LEVODOPA
     Indication: Parkinson^s disease
     Dosage: DURATION TEXT: REMAINS AT 16 HOURS
     Route: 050
     Dates: start: 20230110
  2. CARBIDOPA\LEVODOPA [Suspect]
     Active Substance: CARBIDOPA\LEVODOPA
     Dosage: MD: 9.8 ML, CD:  2.7 ML/H, ED: 3.0 ML?DURATION TEXT: REMAINS AT 16 HOURS
     Route: 050
     Dates: end: 20240131
  3. CARBIDOPA\LEVODOPA [Suspect]
     Active Substance: CARBIDOPA\LEVODOPA
     Dosage: MD: 13.8 ML, CD:  2.7 ML/H, ED: 3.0 ML?DURATION TEXT: REMAINS AT 16 HOURS
     Route: 050
  4. CARBIDOPA\LEVODOPA [Suspect]
     Active Substance: CARBIDOPA\LEVODOPA
     Dosage: MD: 7.8 ML, CD:  3.0 ML/H, ED: 2.5 ML?DURATION TEXT: REMAINS AT 16 HOURS
     Route: 050
     Dates: start: 20240131
  5. SINEMET [Concomitant]
     Active Substance: CARBIDOPA\LEVODOPA
     Indication: Parkinson^s disease
     Dosage: 750 MILLIGRAM?FREQUENCY TEXT: TWICE ONE AT 8AM/PM
     Route: 065
  6. SINEMET [Concomitant]
     Active Substance: CARBIDOPA\LEVODOPA
     Indication: Parkinson^s disease
     Dosage: FREQUENCY TEXT: 1,2,2,2 TABLET AT 8AM, 12, 4,8PM
     Route: 065
  7. BENSERAZIDE HYDROCHLORIDE\LEVODOPA [Concomitant]
     Active Substance: BENSERAZIDE HYDROCHLORIDE\LEVODOPA
     Indication: Parkinson^s disease
     Dosage: FORM STRENGTH: 125 MILLIGRAM?FREQUENCY TEXT: TWICE ONE AT 8AM/8PM?- FREQUENCY TEXT: ONE AT 11PM?D...
     Route: 065
  8. AMITRIPTYLINE [Concomitant]
     Active Substance: AMITRIPTYLINE
     Indication: Sleep disorder
     Dosage: FREQUENCY TEXT: BEFORE SLEEPING
     Route: 065
  9. QUETIAPINE [Concomitant]
     Active Substance: QUETIAPINE
     Indication: Sleep disorder

REACTIONS (19)
  - Inguinal hernia [Recovering/Resolving]
  - Muscle rigidity [Not Recovered/Not Resolved]
  - Nocturia [Not Recovered/Not Resolved]
  - Asthenia [Not Recovered/Not Resolved]
  - Memory impairment [Not Recovered/Not Resolved]
  - Dyschezia [Not Recovered/Not Resolved]
  - Unevaluable event [Recovered/Resolved]
  - Freezing phenomenon [Not Recovered/Not Resolved]
  - Loss of personal independence in daily activities [Not Recovered/Not Resolved]
  - Gait disturbance [Not Recovered/Not Resolved]
  - Abnormal dreams [Not Recovered/Not Resolved]
  - Fatigue [Not Recovered/Not Resolved]
  - Dyskinesia [Recovering/Resolving]
  - On and off phenomenon [Not Recovered/Not Resolved]
  - Stoma site reaction [Not Recovered/Not Resolved]
  - Tension [Not Recovered/Not Resolved]
  - Dyskinesia [Recovered/Resolved]
  - Stoma site pain [Not Recovered/Not Resolved]
  - Stress [Not Recovered/Not Resolved]
